FAERS Safety Report 10476106 (Version 2)
Quarter: 2014Q4

REPORT INFORMATION
  Report Type: Spontaneous
  Country: NI (occurrence: NI)
  Receive Date: 20140925
  Receipt Date: 20141210
  Transmission Date: 20150528
  Serious: Yes (Other)
  Sender: FDA-Public Use
  Company Number: NI-PFIZER INC-2014262713

PATIENT
  Sex: Female

DRUGS (1)
  1. DEPO-PROVERA [Suspect]
     Active Substance: MEDROXYPROGESTERONE ACETATE
     Indication: CONTRACEPTION
     Dosage: 150 MG, SINGLE
     Route: 030

REACTIONS (2)
  - Endometriosis [Unknown]
  - Infertility female [Unknown]

NARRATIVE: CASE EVENT DATE: 2011
